FAERS Safety Report 10969025 (Version 1)
Quarter: 2015Q1

REPORT INFORMATION
  Report Type: Spontaneous
  Country: US (occurrence: US)
  Receive Date: 20150331
  Receipt Date: 20150331
  Transmission Date: 20150721
  Serious: Yes (Other)
  Sender: FDA-Public Use
  Company Number: US-ASTRAZENECA-2015SE27685

PATIENT
  Age: 28581 Day
  Sex: Male
  Weight: 79.4 kg

DRUGS (13)
  1. CASODEX [Suspect]
     Active Substance: BICALUTAMIDE
     Indication: PROSTATE CANCER
     Route: 048
     Dates: start: 2014, end: 2014
  2. DRUGS FOR HYPERTENSION [Concomitant]
     Indication: HYPERTENSION
  3. DRUGS FOR DIABETIC NEUROPATHY [Concomitant]
     Indication: DIABETIC NEUROPATHY
  4. CASODEX [Suspect]
     Active Substance: BICALUTAMIDE
     Indication: PROSTATE CANCER
     Route: 048
     Dates: start: 201501
  5. DRUGS FOR HYPERCHOLESTEREMIA [Concomitant]
     Indication: HYPERCHOLESTEROLAEMIA
  6. CASODEX [Suspect]
     Active Substance: BICALUTAMIDE
     Indication: PROSTATIC SPECIFIC ANTIGEN DECREASED
     Route: 048
     Dates: start: 2014, end: 2014
  7. FLECAINIDE [Concomitant]
     Active Substance: FLECAINIDE
     Indication: ATRIAL FIBRILLATION
     Route: 048
  8. DRUGS FOR CAD [Concomitant]
     Indication: CORONARY ARTERY DISEASE
  9. CASODEX [Suspect]
     Active Substance: BICALUTAMIDE
     Indication: PROSTATIC SPECIFIC ANTIGEN DECREASED
     Route: 048
     Dates: start: 201501
  10. DRUGS FOR DIABETES [Concomitant]
     Indication: DIABETES MELLITUS
  11. CASODEX [Suspect]
     Active Substance: BICALUTAMIDE
     Indication: PROSTATE CANCER
     Route: 048
     Dates: start: 201501
  12. CASODEX [Suspect]
     Active Substance: BICALUTAMIDE
     Indication: PROSTATIC SPECIFIC ANTIGEN DECREASED
     Route: 048
     Dates: start: 201501
  13. DRUGS FOR CABG [Concomitant]
     Indication: CORONARY ARTERY BYPASS

REACTIONS (5)
  - Gynaecomastia [Unknown]
  - Fat tissue increased [Unknown]
  - Breast tenderness [Unknown]
  - Intentional product misuse [Unknown]
  - Malignant neoplasm progression [Unknown]

NARRATIVE: CASE EVENT DATE: 201501
